FAERS Safety Report 6234963-9 (Version None)
Quarter: 2009Q2

REPORT INFORMATION
  Report Type: 
  Country: None (occurrence: None)
  Receive Date: 20090618
  Receipt Date: 20090602
  Transmission Date: 20091009
  Serious: Yes (Hospitalization)
  Sender: FDA-Public Use
  Company Number: D0061813A

PATIENT
  Age: 79 Year
  Sex: Female

DRUGS (10)
  1. VIANI [Suspect]
     Indication: CHRONIC OBSTRUCTIVE PULMONARY DISEASE
     Route: 055
  2. MOXIFLOXACIN HCL [Suspect]
     Dosage: 400MG PER DAY
     Route: 048
     Dates: start: 20090415, end: 20090421
  3. ACETYL SALICYLIC ACID [Suspect]
     Indication: PLATELET AGGREGATION INHIBITION
     Dosage: 100MG PER DAY
     Route: 048
  4. ALLOPURINOL [Suspect]
     Dosage: 100MG PER DAY
     Route: 048
  5. FALITHROM [Suspect]
     Indication: ATRIAL FIBRILLATION
     Route: 048
  6. ACTRAPHANE INSULIN [Suspect]
     Dosage: 10IU PER DAY
     Route: 058
  7. ACTRAPID INSULIN [Suspect]
     Dosage: 52IU PER DAY
     Route: 058
  8. PANTOZOL [Suspect]
     Dosage: 40MG PER DAY
     Route: 048
  9. RAMIPRIL [Suspect]
     Dosage: 2.5MG PER DAY
     Route: 048
  10. SIMVASTATIN [Suspect]
     Dosage: 20MG PER DAY
     Route: 048

REACTIONS (8)
  - CHOLELITHIASIS [None]
  - DEHYDRATION [None]
  - DIARRHOEA [None]
  - DYSPHAGIA [None]
  - GENERAL PHYSICAL HEALTH DETERIORATION [None]
  - HEPATIC STEATOSIS [None]
  - ORAL CANDIDIASIS [None]
  - VOMITING [None]
